FAERS Safety Report 7162598-2 (Version None)
Quarter: 2010Q4

REPORT INFORMATION
  Report Type: 
  Country: None (occurrence: None)
  Receive Date: 20101215
  Receipt Date: 20091125
  Transmission Date: 20110411
  Serious: Yes (Disabling, Other)
  Sender: FDA-Public Use
  Company Number: CA-PFIZER INC-2009282387

PATIENT
  Age: 84 Year
  Sex: Male
  Weight: 76.644 kg

DRUGS (12)
  1. LYRICA [Suspect]
     Indication: NEURALGIA
     Dosage: 25 MG, 2X/DAY
     Dates: end: 20090914
  2. SYNTHROID [Concomitant]
     Indication: HYPOTHYROIDISM
     Dosage: 88 UG, 1X/DAY
     Route: 048
  3. LORAZEPAM [Concomitant]
     Indication: INSOMNIA
     Dosage: 1 MG, 1X/DAY
     Route: 048
  4. CELEXA [Concomitant]
     Indication: GENERALISED ANXIETY DISORDER
     Dosage: 10 MG, 1X/DAY
     Route: 048
  5. LIPITOR [Concomitant]
     Indication: HYPERLIPIDAEMIA
     Dosage: 10 MG, 1X/DAY
     Route: 048
  6. RAMIPRIL [Concomitant]
     Indication: HYPERTENSION
     Dosage: 5 MG, 1X/DAY
     Route: 048
  7. GABAPENTIN [Concomitant]
     Indication: NEURALGIA
     Dosage: 300 MG, 3X/DAY
     Route: 048
     Dates: start: 20090914
  8. OXYCONTIN [Concomitant]
     Indication: NEURALGIA
     Dosage: 10 MG, 3X/DAY
     Route: 048
  9. LASIX [Concomitant]
     Indication: CARDIAC FAILURE CONGESTIVE
     Dosage: 40 MG, 2X/DAY
  10. ATENOLOL [Concomitant]
     Indication: HYPERTENSION
     Dosage: 25 MG, 2X/DAY
  11. DURAGESIC-100 [Concomitant]
     Indication: NEURALGIA
     Dosage: 12 UG, EVERY 72 HOURS
  12. HYDROMORPHONE HCL [Concomitant]
     Indication: NEURALGIA
     Dosage: 3 MG, 2X/DAY
     Dates: start: 20091015

REACTIONS (5)
  - GLOMERULAR FILTRATION RATE DECREASED [None]
  - NEPHROPATHY TOXIC [None]
  - RENAL IMPAIRMENT [None]
  - SPEECH DISORDER [None]
  - TREMOR [None]
